FAERS Safety Report 12697338 (Version 1)
Quarter: 2016Q3

REPORT INFORMATION
  Report Type: Spontaneous
  Country: US (occurrence: None)
  Receive Date: 20160829
  Receipt Date: 20160829
  Transmission Date: 20161109
  Serious: Yes (Hospitalization)
  Sender: FDA-Public Use
  Company Number: None

PATIENT
  Age: 89 Year
  Sex: Female
  Weight: 59.6 kg

DRUGS (8)
  1. VERAPAMIL (CALAN-SR) [Concomitant]
  2. LANTUS [Concomitant]
     Active Substance: INSULIN GLARGINE
  3. MULTIPLE VITAMINS-MINERALS (THERAPEUTIC MULTIVITAMIN-MINERALS) [Concomitant]
  4. WARFARIN, 2.5MG [Suspect]
     Active Substance: WARFARIN
     Indication: ATRIAL FIBRILLATION
     Route: 048
  5. JANUVIA [Concomitant]
     Active Substance: SITAGLIPTIN PHOSPHATE
  6. LOVASTATIN (MEVACOR) [Concomitant]
  7. TIMOLOL (TIMOPTIC) [Concomitant]
  8. ASPIRIN. [Concomitant]
     Active Substance: ASPIRIN

REACTIONS (7)
  - Subdural haematoma [None]
  - Brain midline shift [None]
  - Seizure [None]
  - Laceration [None]
  - Fall [None]
  - Head injury [None]
  - Confusional state [None]

NARRATIVE: CASE EVENT DATE: 20160804
